FAERS Safety Report 5164998-9 (Version None)
Quarter: 2006Q4

REPORT INFORMATION
  Report Type: 
  Country: None (occurrence: None)
  Receive Date: 20061205
  Receipt Date: 20020102
  Transmission Date: 20070319
  Serious: Yes (Hospitalization)
  Sender: FDA-Public Use
  Company Number: FR-BOEHRINGER INGELHEIM PHARMACEUTICALS, INC.-2002-FF-00005FF

PATIENT
  Sex: Male

DRUGS (5)
  1. VIRAMUNE [Suspect]
     Indication: PROPHYLAXIS AGAINST HIV INFECTION
     Dosage: 10 MG/ML
     Route: 048
     Dates: start: 20000209, end: 20000209
  2. VIRAMUNE [Suspect]
     Dosage: ONE TABLET TAKEN BY THE MOTHER
     Route: 015
     Dates: start: 20000208, end: 20000208
  3. RETROVIR [Concomitant]
     Indication: HIV INFECTION
     Dosage: 100 MG/10 ML
     Route: 048
  4. RETROVIR [Concomitant]
     Route: 015
     Dates: start: 19991215, end: 20000210
  5. RETROVIR [Concomitant]
     Route: 015
     Dates: start: 20000208, end: 20000208

REACTIONS (7)
  - BLOOD CREATINE PHOSPHOKINASE INCREASED [None]
  - BLOOD LACTIC ACID INCREASED [None]
  - CONVULSION [None]
  - DRUG EXPOSURE DURING PREGNANCY [None]
  - GRAND MAL CONVULSION [None]
  - GROWTH RETARDATION [None]
  - WEIGHT GAIN POOR [None]
